FAERS Safety Report 7964322-X (Version None)
Quarter: 2011Q4

REPORT INFORMATION
  Report Type: 
  Country: None (occurrence: None)
  Receive Date: 20111208
  Receipt Date: 20111128
  Transmission Date: 20120403
  Serious: Yes (Hospitalization)
  Sender: FDA-Public Use
  Company Number: US-BAYER-2011-012009

PATIENT
  Age: 21 Year
  Sex: Female
  Weight: 88.435 kg

DRUGS (8)
  1. NAPROXEN SODIUM AND PSEUDOEPHEDRINE HYDROCHLORIDE [Concomitant]
     Dosage: UNK
     Route: 048
     Dates: start: 20081024
  2. YAZ [Suspect]
     Indication: CONTRACEPTION
     Dosage: UNK
     Dates: start: 20071001, end: 20090301
  3. METFORMIN HCL [Concomitant]
     Route: 048
  4. YAZ [Suspect]
     Indication: ACNE
  5. SYNTHROID [Concomitant]
     Dosage: 0.88 ?G, UNK
     Route: 048
  6. AZITHROMYCIN [Concomitant]
     Dosage: 500 MG, UNK
     Route: 048
  7. NSAID'S [Concomitant]
     Dosage: UNK
     Dates: start: 20020101
  8. ALBUTEROL [Concomitant]

REACTIONS (6)
  - ABDOMINAL PAIN UPPER [None]
  - GALLBLADDER DISORDER [None]
  - BILIARY DYSKINESIA [None]
  - CHOLECYSTITIS [None]
  - PAIN [None]
  - CHOLECYSTITIS CHRONIC [None]
